FAERS Safety Report 7451960-6 (Version None)
Quarter: 2011Q2

REPORT INFORMATION
  Report Type: 
  Country: None (occurrence: None)
  Receive Date: 20110502
  Receipt Date: 20110421
  Transmission Date: 20111010
  Serious: Yes (Hospitalization)
  Sender: FDA-Public Use
  Company Number: PHHY2011CH33877

PATIENT

DRUGS (2)
  1. LITHIUM CARBONATE [Interacting]
     Dosage: UNK UKN, UNK
  2. RISPERIDONE [Suspect]
     Indication: SCHIZOAFFECTIVE DISORDER
     Dosage: 6 MG, UNK

REACTIONS (15)
  - TOXIC ENCEPHALOPATHY [None]
  - ATAXIA [None]
  - PYREXIA [None]
  - CHILLS [None]
  - ELECTROCARDIOGRAM ABNORMAL [None]
  - DRUG INTERACTION [None]
  - SALIVARY HYPERSECRETION [None]
  - COGNITIVE DISORDER [None]
  - PSYCHOTIC DISORDER [None]
  - AMNESIA [None]
  - THINKING ABNORMAL [None]
  - HYPOMANIA [None]
  - EXTRAPYRAMIDAL DISORDER [None]
  - DISTURBANCE IN ATTENTION [None]
  - ACTIVITIES OF DAILY LIVING IMPAIRED [None]
